FAERS Safety Report 21697492 (Version 14)
Quarter: 2024Q1

REPORT INFORMATION
  Report Type: Other
  Country: CA (occurrence: None)
  Receive Date: 20221208
  Receipt Date: 20240131
  Transmission Date: 20240410
  Serious: No
  Sender: FDA-Public Use
  Company Number: CA-ROCHE-3235375

PATIENT
  Sex: Female

DRUGS (1)
  1. OCREVUS [Suspect]
     Active Substance: OCRELIZUMAB
     Indication: Relapsing-remitting multiple sclerosis
     Dosage: 300 MG AT DAY 0 AND 14, THEN 600 MG EVERY 6 MONTH. LAST INFUSION DATE: 09/AUG/2022
     Route: 042
     Dates: start: 20220725, end: 20230609

REACTIONS (5)
  - COVID-19 [Unknown]
  - Anxiety [Unknown]
  - Immunodeficiency [Unknown]
  - Infection susceptibility increased [Unknown]
  - Off label use [Unknown]
